FAERS Safety Report 7919815-8 (Version None)
Quarter: 2011Q4

REPORT INFORMATION
  Report Type: 
  Country: None (occurrence: None)
  Receive Date: 20111117
  Receipt Date: 20111117
  Transmission Date: 20120403
  Serious: Yes (Life-Threatening, Hospitalization, Disabling)
  Sender: FDA-Public Use
  Company Number: None

PATIENT
  Age: 69 Year
  Sex: Female
  Weight: 66.224 kg

DRUGS (9)
  1. LINEZOLID [Concomitant]
  2. IMIPANEM [Concomitant]
  3. LEVAQUIN [Concomitant]
  4. MEROPENEM [Concomitant]
  5. PLAK VAC [Suspect]
     Indication: ENDOTRACHEAL INTUBATION
     Dates: start: 20111011, end: 20111021
  6. PLAK VAC [Suspect]
     Indication: RESPIRATORY FAILURE
     Dates: start: 20111011, end: 20111021
  7. AZITRONAM [Concomitant]
  8. VANCOMYCIN [Concomitant]
  9. FLAGYL [Concomitant]

REACTIONS (9)
  - CARDIOMEGALY [None]
  - PYREXIA [None]
  - DYSPNOEA [None]
  - PULMONARY CONGESTION [None]
  - CHRONIC OBSTRUCTIVE PULMONARY DISEASE [None]
  - CHILLS [None]
  - PNEUMONIA [None]
  - RESPIRATORY FAILURE [None]
  - COUGH [None]
